FAERS Safety Report 5231501-4 (Version None)
Quarter: 2007Q1

REPORT INFORMATION
  Report Type: 
  Country: None (occurrence: None)
  Receive Date: 20070202
  Receipt Date: 20070124
  Transmission Date: 20070707
  Serious: Yes (Other)
  Sender: FDA-Public Use
  Company Number: TPA2007A00147

PATIENT
  Age: 63 Year
  Sex: Female
  Weight: 78.4723 kg

DRUGS (3)
  1. ACTOS [Suspect]
     Dosage: PER ORAL
     Route: 048
     Dates: end: 20061201
  2. METFORMIN HCL [Suspect]
  3. GLIPIZIDE [Suspect]

REACTIONS (5)
  - BLOOD GLUCOSE DECREASED [None]
  - DYSPNOEA [None]
  - MYOCARDIAL INFARCTION [None]
  - SWELLING [None]
  - WEIGHT INCREASED [None]
